FAERS Safety Report 8952473 (Version 1)
Quarter: 2012Q4

REPORT INFORMATION
  Report Type: 
  Country: US (occurrence: US)
  Receive Date: 20121205
  Receipt Date: 20121205
  Transmission Date: 20130627
  Serious: Yes (Other)
  Sender: FDA-Public Use
  Company Number: US-BAYER-2012-126434

PATIENT
  Sex: Female

DRUGS (4)
  1. YASMIN [Suspect]
     Dosage: UNK
     Dates: start: 20080711
  2. YAZ [Suspect]
     Dosage: UNK
     Dates: start: 20080711
  3. OCELLA [Suspect]
     Dosage: UNK
     Dates: start: 20080711
  4. GIANVI [Suspect]
     Dosage: UNK
     Dates: start: 20080711

REACTIONS (8)
  - Gallbladder injury [None]
  - Deep vein thrombosis [None]
  - Injury [None]
  - Pain [None]
  - Emotional distress [None]
  - General physical health deterioration [None]
  - Anxiety [None]
  - Pain [None]
